FAERS Safety Report 11659245 (Version 2)
Quarter: 2016Q1

REPORT INFORMATION
  Report Type: Spontaneous
  Country: IT (occurrence: IT)
  Receive Date: 20151026
  Receipt Date: 20160114
  Transmission Date: 20160525
  Serious: Yes (Death)
  Sender: FDA-Public Use
  Company Number: IT-ROCHE-1649108

PATIENT
  Age: 76 Year
  Sex: Female

DRUGS (1)
  1. FIDATO [Suspect]
     Active Substance: CEFTRIAXONE SODIUM
     Indication: BRONCHITIS
     Route: 065
     Dates: start: 20151005, end: 20151005

REACTIONS (4)
  - Anaphylactic shock [Fatal]
  - Circulatory collapse [Fatal]
  - Coma [Fatal]
  - Cardio-respiratory arrest [Fatal]

NARRATIVE: CASE EVENT DATE: 20151005
